FAERS Safety Report 4952128-5 (Version None)
Quarter: 2006Q1

REPORT INFORMATION
  Report Type: 
  Country: None (occurrence: None)
  Receive Date: 20060320
  Receipt Date: 20060308
  Transmission Date: 20060701
  Serious: Yes (Other)
  Sender: FDA-Public Use
  Company Number: 2006BH004603

PATIENT

DRUGS (1)
  1. PENICILLIN G [Suspect]
     Indication: TOXIC EPIDERMAL NECROLYSIS

REACTIONS (1)
  - TOXIC EPIDERMAL NECROLYSIS [None]
